FAERS Safety Report 18336642 (Version 2)
Quarter: 2020Q4

REPORT INFORMATION
  Report Type: Report from Study
  Country: BR (occurrence: BR)
  Receive Date: 20201002
  Receipt Date: 20201004
  Transmission Date: 20210113
  Serious: Yes (Other)
  Sender: FDA-Public Use
  Company Number: BR-AMGEN-BRACT2020074209

PATIENT
  Age: 46 Year
  Sex: Male

DRUGS (1)
  1. PASURTA [Suspect]
     Active Substance: ERENUMAB
     Indication: MIGRAINE
     Dosage: UNK (PREFILLED SYRINGE)
     Route: 065
     Dates: start: 20200428, end: 20200526

REACTIONS (5)
  - Myalgia [Not Recovered/Not Resolved]
  - Paraesthesia [Not Recovered/Not Resolved]
  - Headache [Not Recovered/Not Resolved]
  - Pain [Not Recovered/Not Resolved]
  - Intracranial pressure increased [Unknown]

NARRATIVE: CASE EVENT DATE: 202004
